FAERS Safety Report 17332314 (Version 6)
Quarter: 2020Q1

REPORT INFORMATION
  Report Type: Report from Study
  Country: None (occurrence: ES)
  Receive Date: 20200127
  Receipt Date: 20200320
  Transmission Date: 20200409
  Serious: Yes (Hospitalization, Other)
  Sender: FDA-Public Use
  Company Number: ES-ABBVIE-19S-144-2781917-00

PATIENT
  Age: 61 Year
  Sex: Male

DRUGS (1)
  1. DUODOPA [Suspect]
     Active Substance: CARBIDOPA\LEVODOPA
     Indication: PARKINSON^S DISEASE
     Route: 050
     Dates: start: 20160630

REACTIONS (14)
  - Gastritis [Recovered/Resolved]
  - Device issue [Not Recovered/Not Resolved]
  - Wound complication [Unknown]
  - Disorientation [Recovered/Resolved]
  - Device breakage [Recovered/Resolved]
  - Stoma site erythema [Recovered/Resolved]
  - Agitation [Recovered/Resolved]
  - Wound haemorrhage [Recovered/Resolved]
  - Embedded device [Recovered/Resolved]
  - Stoma site discharge [Recovered/Resolved]
  - Sneezing [Unknown]
  - Cough [Unknown]
  - Stoma site discharge [Recovered/Resolved]
  - Stoma site infection [Recovered/Resolved]

NARRATIVE: CASE EVENT DATE: 2019
